FAERS Safety Report 8477034-3 (Version None)
Quarter: 2012Q2

REPORT INFORMATION
  Report Type: 
  Country: None (occurrence: None)
  Receive Date: 20120629
  Receipt Date: 20120621
  Transmission Date: 20120825
  Serious: No
  Sender: FDA-Public Use
  Company Number: US-B.I. PHARMACEUTICALS,INC./RIDGEFIELD-2012-BP-14213BP

PATIENT
  Sex: Female

DRUGS (5)
  1. CRESTOR [Concomitant]
     Indication: BLOOD CHOLESTEROL
     Dosage: 5 MG
     Route: 048
     Dates: start: 20070101
  2. PRADAXA [Suspect]
     Dosage: 300 MG
     Route: 048
     Dates: start: 20120528
  3. PRADAXA [Suspect]
     Indication: ATRIAL FIBRILLATION
     Dosage: 300 MG
     Route: 048
     Dates: start: 20101101, end: 20120229
  4. ASPIRIN [Concomitant]
     Dosage: 81 MG
     Route: 048
  5. TOPRAL [Concomitant]
     Indication: BLOOD PRESSURE
     Dosage: 100 MG
     Route: 048

REACTIONS (1)
  - MYALGIA [None]
